FAERS Safety Report 4325584-3 (Version None)
Quarter: 2004Q1

REPORT INFORMATION
  Report Type: 
  Country: None (occurrence: None)
  Receive Date: 20040329
  Receipt Date: 20040323
  Transmission Date: 20041129
  Serious: Yes (Other)
  Sender: FDA-Public Use
  Company Number: 200413470GDDC

PATIENT
  Age: 62 Year
  Sex: Male

DRUGS (2)
  1. LOVENOX [Suspect]
     Route: 058
     Dates: start: 20040315, end: 20040317
  2. PLAVIX [Concomitant]
     Route: 048

REACTIONS (1)
  - HEPATOTOXICITY [None]
